FAERS Safety Report 5252506-3 (Version None)
Quarter: 2007Q1

REPORT INFORMATION
  Report Type: 
  Country: None (occurrence: None)
  Receive Date: 20070301
  Receipt Date: 20070126
  Transmission Date: 20070707
  Serious: Yes (Life-Threatening)
  Sender: FDA-Public Use
  Company Number: US-BRISTOL-MYERS SQUIBB COMPANY-13634266

PATIENT
  Age: 64 Year
  Sex: Male

DRUGS (1)
  1. ERBITUX [Suspect]
     Indication: COLON CANCER METASTATIC
     Route: 042
     Dates: start: 20061213, end: 20061213

REACTIONS (1)
  - INFUSION RELATED REACTION [None]
